FAERS Safety Report 8834845 (Version 2)
Quarter: 2013Q3

REPORT INFORMATION
  Report Type: Spontaneous
  Country: DK (occurrence: DK)
  Receive Date: 20121010
  Receipt Date: 20130812
  Transmission Date: 20140515
  Serious: Yes (Disabling)
  Sender: FDA-Public Use
  Company Number: DK-GLAXOSMITHKLINE-B0836704A

PATIENT
  Age: 54 Year
  Sex: Male

DRUGS (3)
  1. MALARONE [Suspect]
     Indication: MALARIA PROPHYLAXIS
     Dosage: 1TAB PER DAY
     Route: 048
     Dates: start: 20120505, end: 20120920
  2. ATACAND [Concomitant]
     Indication: HYPERTENSION
     Dates: start: 2009
  3. AMLODIPINE [Concomitant]
     Indication: HYPERTENSION
     Dates: start: 201111

REACTIONS (2)
  - Stomatitis [Recovering/Resolving]
  - Oral pain [Recovering/Resolving]
